FAERS Safety Report 23332415 (Version 1)
Quarter: 2023Q4

REPORT INFORMATION
  Report Type: Spontaneous
  Country: MY (occurrence: MY)
  Receive Date: 20231222
  Receipt Date: 20231222
  Transmission Date: 20240110
  Serious: Yes (Other)
  Sender: FDA-Public Use
  Company Number: MY-TAKEDA-2023TUS122140

PATIENT
  Age: 28 Year
  Sex: Female

DRUGS (1)
  1. CONTROLOC [Suspect]
     Active Substance: PANTOPRAZOLE SODIUM
     Indication: Abdominal pain
     Dosage: 40 MILLIGRAM, BID
     Route: 042

REACTIONS (3)
  - Rash pruritic [Recovered/Resolved]
  - Circumoral oedema [Recovered/Resolved]
  - Erythema [Recovered/Resolved]
